FAERS Safety Report 9760373 (Version 1)
Quarter: 2013Q4

REPORT INFORMATION
  Report Type: Spontaneous
  Country: US (occurrence: US)
  Receive Date: 20131216
  Receipt Date: 20131216
  Transmission Date: 20140711
  Serious: No
  Sender: FDA-Public Use
  Company Number: US-GILEAD-2010-0029568

PATIENT
  Sex: Female
  Weight: 106.59 kg

DRUGS (10)
  1. LETAIRIS [Suspect]
     Indication: PULMONARY ARTERIAL HYPERTENSION
     Route: 048
     Dates: start: 20100408
  2. TORSEMIDE [Concomitant]
  3. LIPITOR [Concomitant]
  4. ASPIRIN [Concomitant]
  5. GLIPIZIDE [Concomitant]
  6. TRAMADOL HCL [Concomitant]
  7. PREVACID [Concomitant]
  8. PROTONIX [Concomitant]
  9. FISH OIL [Concomitant]
  10. DAILY MULTIVITAMIN [Concomitant]

REACTIONS (1)
  - Fatigue [Unknown]
